FAERS Safety Report 13953882 (Version 1)
Quarter: 2017Q3

REPORT INFORMATION
  Report Type: Spontaneous
  Country: US (occurrence: US)
  Receive Date: 20170911
  Receipt Date: 20170911
  Transmission Date: 20171128
  Serious: No
  Sender: FDA-Public Use
  Company Number: US-TEVA-757075USA

PATIENT
  Age: 45 Year
  Sex: Female
  Weight: 79.45 kg

DRUGS (4)
  1. CLONAZEPAM. [Concomitant]
     Active Substance: CLONAZEPAM
     Indication: ANXIETY
  2. VENLAFAXINE [Suspect]
     Active Substance: VENLAFAXINE HYDROCHLORIDE
     Indication: DEPRESSION
     Dates: start: 201701, end: 20170313
  3. CLONAZEPAM. [Concomitant]
     Active Substance: CLONAZEPAM
     Indication: NERVOUSNESS
  4. WOMEN^S MULTI [Concomitant]

REACTIONS (10)
  - Agitation [Recovering/Resolving]
  - Insomnia [Not Recovered/Not Resolved]
  - Weight increased [Recovering/Resolving]
  - Nightmare [Not Recovered/Not Resolved]
  - Apathy [Recovering/Resolving]
  - Irritability [Recovering/Resolving]
  - Intellectual disability [Recovering/Resolving]
  - Crying [Recovering/Resolving]
  - Fatigue [Recovering/Resolving]
  - Paranoia [Recovering/Resolving]

NARRATIVE: CASE EVENT DATE: 201702
